FAERS Safety Report 25859771 (Version 1)
Quarter: 2025Q3

REPORT INFORMATION
  Report Type: Spontaneous
  Country: GB (occurrence: GB)
  Receive Date: 20250929
  Receipt Date: 20250929
  Transmission Date: 20251021
  Serious: Yes (Other)
  Sender: TEVA
  Company Number: None

PATIENT
  Sex: Male

DRUGS (1)
  1. ENZALUTAMIDE [Suspect]
     Active Substance: ENZALUTAMIDE
     Indication: Prostate cancer
     Dosage: 120MG ONCE DAILY, 120 MG DAILY
     Route: 065

REACTIONS (7)
  - Nerve injury [Unknown]
  - Discomfort [Unknown]
  - Lip swelling [Unknown]
  - Rash [Unknown]
  - Pain [Unknown]
  - Oral pain [Unknown]
  - Fatigue [Unknown]

NARRATIVE: CASE EVENT DATE: 20250923
